FAERS Safety Report 9140295 (Version 1)
Quarter: 2013Q1

REPORT INFORMATION
  Report Type: Spontaneous
  Country: GB (occurrence: GB)
  Receive Date: 20130305
  Receipt Date: 20130305
  Transmission Date: 20140127
  Serious: Yes (Hospitalization, Other)
  Sender: FDA-Public Use
  Company Number: GB-PFIZER INC-2013073171

PATIENT
  Age: 20 Year
  Sex: Male
  Weight: 70 kg

DRUGS (2)
  1. EPANUTIN [Suspect]
     Indication: EPILEPSY
     Dosage: 12 G, UNK
  2. PRIMIDONE [Suspect]
     Indication: EPILEPSY
     Dosage: 15 G, UNK

REACTIONS (14)
  - Overdose [Recovered/Resolved]
  - Suicide attempt [Unknown]
  - Toxicity to various agents [Recovered/Resolved]
  - Circulatory collapse [Recovered/Resolved]
  - Anticonvulsant drug level above therapeutic [Recovered/Resolved]
  - Depressed level of consciousness [Recovered/Resolved]
  - Restlessness [Recovered/Resolved]
  - Strabismus [Recovered/Resolved]
  - Hyporeflexia [Recovered/Resolved]
  - Ataxia [Recovered/Resolved]
  - Disorientation [Recovered/Resolved]
  - Proteinuria [Recovered/Resolved]
  - Amnesia [Not Recovered/Not Resolved]
  - Nystagmus [Not Recovered/Not Resolved]
